FAERS Safety Report 16185114 (Version 5)
Quarter: 2020Q1

REPORT INFORMATION
  Report Type: Spontaneous
  Country: US (occurrence: US)
  Receive Date: 20190411
  Receipt Date: 20200324
  Transmission Date: 20200409
  Serious: No
  Sender: FDA-Public Use
  Company Number: US-PFIZER INC-2019149990

PATIENT
  Age: 80 Year
  Sex: Female
  Weight: 47.63 kg

DRUGS (3)
  1. PREMARIN [Suspect]
     Active Substance: ESTROGENS, CONJUGATED
     Indication: BONE LOSS
     Dosage: 0.625 MG, 1X/DAY
     Route: 048
  2. ALDACTONE [Concomitant]
     Active Substance: SPIRONOLACTONE
     Indication: ALOPECIA
     Dosage: UNK, 1X/DAY (1 PO ONCE DAILY(QD))
     Route: 048
  3. PREMARIN [Suspect]
     Active Substance: ESTROGENS, CONJUGATED
     Indication: POSTMENOPAUSE

REACTIONS (8)
  - Fall [Recovered/Resolved]
  - Body height decreased [Unknown]
  - Underweight [Unknown]
  - Drug hypersensitivity [Not Recovered/Not Resolved]
  - Cough [Not Recovered/Not Resolved]
  - Contusion [Unknown]
  - Influenza [Recovered/Resolved]
  - Blood cholesterol increased [Unknown]
